FAERS Safety Report 4893650-X (Version None)
Quarter: 2005Q4

REPORT INFORMATION
  Report Type: 
  Country: None (occurrence: None)
  Receive Date: 20051223
  Receipt Date: 20051005
  Transmission Date: 20060501
  Serious: No
  Sender: FDA-Public Use
  Company Number: 2005PV002856

PATIENT
  Age: 62 Year
  Sex: Female

DRUGS (2)
  1. SYMLIN [Suspect]
     Indication: DIABETES MELLITUS INSULIN-DEPENDENT
     Dosage: 15 MCG;QD;SC
     Route: 058
     Dates: start: 20050928
  2. HUMULIN R [Concomitant]

REACTIONS (1)
  - BLOOD GLUCOSE INCREASED [None]
